FAERS Safety Report 16803099 (Version 3)
Quarter: 2019Q4

REPORT INFORMATION
  Report Type: Spontaneous
  Country: SI (occurrence: SI)
  Receive Date: 20190913
  Receipt Date: 20191018
  Transmission Date: 20200122
  Serious: Yes (Other)
  Sender: FDA-Public Use
  Company Number: SI-AMGEN-SVNSP2018163666

PATIENT
  Age: 76 Year
  Sex: Female
  Weight: 60 kg

DRUGS (10)
  1. COAXIL [Concomitant]
     Active Substance: TIANEPTINE SODIUM
     Indication: DEPRESSION
     Dosage: 12.5 UNK
     Dates: start: 2006
  2. CALCIUM CARBONATE. [Concomitant]
     Active Substance: CALCIUM CARBONATE
     Indication: OSTEOPOROTIC FRACTURE
  3. ATORIS [Concomitant]
     Active Substance: ATORVASTATIN CALCIUM
     Indication: DYSLIPIDAEMIA
     Dosage: 10 MILLIGRAM, QD
     Dates: start: 2003
  4. BONIVA [Concomitant]
     Active Substance: IBANDRONATE SODIUM
     Indication: OSTEOPOROTIC FRACTURE
     Dosage: 150 UNK
     Dates: start: 2017
  5. CALCIUM [Concomitant]
     Active Substance: CALCIUM
  6. PLIVIT D3 [Concomitant]
     Active Substance: CHOLECALCIFEROL
     Indication: OSTEOPOROSIS
     Dosage: 42 DROP, QWK
     Dates: start: 2006
  7. PROLIA [Suspect]
     Active Substance: DENOSUMAB
     Indication: OSTEOPOROSIS POSTMENOPAUSAL
     Dosage: 60 MILLIGRAM, Q6MO
     Route: 058
     Dates: start: 20151027, end: 20181107
  8. FLIXOTIDE [Concomitant]
     Active Substance: FLUTICASONE PROPIONATE
     Indication: ASTHMA
     Dosage: 2X250 UNIT, QD
     Dates: start: 2006
  9. PLIVIT D3 [Concomitant]
     Active Substance: CHOLECALCIFEROL
     Indication: OSTEOPOROTIC FRACTURE
  10. NEXIUM I.V. [Concomitant]
     Active Substance: ESOMEPRAZOLE SODIUM
     Dosage: 40X2 UNIT, QD
     Dates: start: 2006

REACTIONS (4)
  - Impaired healing [Recovering/Resolving]
  - Osteoporotic fracture [Unknown]
  - Tooth extraction [Recovering/Resolving]
  - Osteonecrosis of jaw [Recovered/Resolved]

NARRATIVE: CASE EVENT DATE: 2015
